FAERS Safety Report 18344712 (Version 1)
Quarter: 2020Q4

REPORT INFORMATION
  Report Type: Spontaneous
  Country: GR (occurrence: GR)
  Receive Date: 20201005
  Receipt Date: 20201005
  Transmission Date: 20210114
  Serious: Yes (Disabling)
  Sender: FDA-Public Use
  Company Number: GR-TEVA-2020-GR-1834764

PATIENT
  Age: 56 Year
  Sex: Male
  Weight: 104 kg

DRUGS (6)
  1. ATORVASTATIN [Suspect]
     Active Substance: ATORVASTATIN
     Indication: CORONARY ARTERY DISEASE
     Dosage: 1DOSAGEFORM
     Route: 048
     Dates: start: 2015, end: 2016
  2. EZETIMIBE 10 MG [Suspect]
     Active Substance: EZETIMIBE
     Indication: CORONARY ARTERY DISEASE
     Dosage: 1DOSAGEFORM
     Route: 048
     Dates: start: 2018, end: 2020
  3. ROSUVASTATIN 20 MG [Suspect]
     Active Substance: ROSUVASTATIN
     Indication: CORONARY ARTERY DISEASE
     Dosage: 1DOSAGEFORM
     Route: 048
     Dates: start: 2016, end: 2018
  4. ATORVASTATIN [Suspect]
     Active Substance: ATORVASTATIN
     Dosage: 1DF
     Route: 048
     Dates: start: 2015, end: 2016
  5. SIMVASTATIN 40 MG [Suspect]
     Active Substance: SIMVASTATIN
     Indication: CORONARY ARTERY DISEASE
     Dosage: 1DOSAGEFORM
     Route: 048
     Dates: start: 2018, end: 2019
  6. FENOFIBRATE 145 MG [Suspect]
     Active Substance: FENOFIBRATE
     Indication: CORONARY ARTERY DISEASE
     Dosage: 1DOSAGEFORM
     Route: 048
     Dates: start: 2016, end: 2016

REACTIONS (2)
  - Myopathy [Recovering/Resolving]
  - Hypertransaminasaemia [Recovering/Resolving]

NARRATIVE: CASE EVENT DATE: 201506
